FAERS Safety Report 6545558-1 (Version None)
Quarter: 2010Q1

REPORT INFORMATION
  Report Type: 
  Country: None (occurrence: None)
  Receive Date: 20100121
  Receipt Date: 20100115
  Transmission Date: 20100710
  Serious: No
  Sender: FDA-Public Use
  Company Number: US-B.I. PHARMACEUTICALS,INC./RIDGEFIELD-2010-BP-00557BP

PATIENT
  Sex: Female

DRUGS (9)
  1. SPIRIVA [Suspect]
     Indication: CHRONIC OBSTRUCTIVE PULMONARY DISEASE
     Dosage: 18 MCG
     Route: 055
     Dates: start: 20090601
  2. ACIPHEX [Concomitant]
     Indication: ABDOMINAL DISCOMFORT
  3. DETROL [Concomitant]
     Indication: BLADDER REPAIR
  4. PROVENTIL [Concomitant]
     Indication: CHRONIC OBSTRUCTIVE PULMONARY DISEASE
  5. TEMAZEPAM [Concomitant]
     Indication: SLEEP DISORDER
  6. VICODIN [Concomitant]
     Indication: HIP FRACTURE
  7. LYRICA [Concomitant]
     Indication: NEUROPATHY PERIPHERAL
  8. CENTRUM SILVER [Concomitant]
     Indication: PROPHYLAXIS
  9. CALCIUM WITH D [Concomitant]
     Indication: PROPHYLAXIS

REACTIONS (1)
  - CANDIDIASIS [None]
